FAERS Safety Report 16916198 (Version 1)
Quarter: 2019Q4

REPORT INFORMATION
  Report Type: Spontaneous
  Country: US (occurrence: US)
  Receive Date: 20191014
  Receipt Date: 20191014
  Transmission Date: 20200122
  Serious: Yes (Life-Threatening, Other)
  Sender: FDA-Public Use
  Company Number: US-VIFOR (INTERNATIONAL) INC.-VIT-2019-10209

PATIENT
  Age: 53 Year
  Sex: Male
  Weight: 80 kg

DRUGS (1)
  1. MIRCERA [Suspect]
     Active Substance: METHOXY POLYETHYLENE GLYCOL-EPOETIN BETA
     Indication: ANAEMIA
     Route: 040
     Dates: start: 20191001, end: 20191001

REACTIONS (8)
  - Blood pressure decreased [Unknown]
  - Hyperhidrosis [Unknown]
  - Hyporesponsive to stimuli [Unknown]
  - Pallor [Unknown]
  - Incoherent [Unknown]
  - Drug hypersensitivity [Unknown]
  - Nausea [Unknown]
  - Throat tightness [Unknown]

NARRATIVE: CASE EVENT DATE: 20191001
